FAERS Safety Report 9693413 (Version 1)
Quarter: 2013Q4

REPORT INFORMATION
  Report Type: Spontaneous
  Country: US (occurrence: None)
  Receive Date: 20131114
  Receipt Date: 20131114
  Transmission Date: 20140711
  Serious: Yes (Death, Other)
  Sender: FDA-Public Use
  Company Number: ADR-2013-02068

PATIENT
  Age: 26 Year
  Sex: Male

DRUGS (1)
  1. LIORESAL [Suspect]
     Indication: MUSCLE SPASTICITY
     Dates: start: 20061001, end: 20130425

REACTIONS (3)
  - Bronchopneumonia [None]
  - Epilepsy [None]
  - Disease complication [None]
